FAERS Safety Report 11019547 (Version 2)
Quarter: 2015Q2

REPORT INFORMATION
  Report Type: Spontaneous
  Country: US (occurrence: US)
  Receive Date: 20150412
  Receipt Date: 20150525
  Transmission Date: 20150821
  Serious: Yes (Other)
  Sender: FDA-Public Use
  Company Number: US-JNJFOC-20140805532

PATIENT
  Age: 71 Year
  Sex: Female
  Weight: 92.99 kg

DRUGS (8)
  1. XARELTO [Suspect]
     Active Substance: RIVAROXABAN
     Indication: CEREBROVASCULAR ACCIDENT PROPHYLAXIS
     Route: 048
     Dates: start: 201304
  2. XARELTO [Suspect]
     Active Substance: RIVAROXABAN
     Indication: ATRIAL FIBRILLATION
     Route: 048
     Dates: start: 201304
  3. XARELTO [Suspect]
     Active Substance: RIVAROXABAN
     Indication: CEREBROVASCULAR ACCIDENT PROPHYLAXIS
     Route: 048
     Dates: start: 201406
  4. LEVAQUIN [Suspect]
     Active Substance: LEVOFLOXACIN
     Indication: BLOOD URINE PRESENT
     Route: 048
     Dates: start: 20140803, end: 20140805
  5. XARELTO [Suspect]
     Active Substance: RIVAROXABAN
     Indication: ATRIAL FIBRILLATION
     Route: 048
     Dates: start: 201406
  6. LEVAQUIN [Suspect]
     Active Substance: LEVOFLOXACIN
     Indication: BLOOD URINE PRESENT
     Route: 048
     Dates: start: 20140802, end: 20140803
  7. BABY ASPIRIN [Suspect]
     Active Substance: ASPIRIN
     Indication: PRODUCT USED FOR UNKNOWN INDICATION
     Route: 048
  8. LEVAQUIN [Suspect]
     Active Substance: LEVOFLOXACIN
     Indication: BLOOD URINE PRESENT
     Route: 048
     Dates: start: 20140805

REACTIONS (2)
  - Bladder spasm [Unknown]
  - Blood urine present [Recovering/Resolving]

NARRATIVE: CASE EVENT DATE: 201404
